FAERS Safety Report 7904039-0 (Version None)
Quarter: 2011Q4

REPORT INFORMATION
  Report Type: 
  Country: None (occurrence: None)
  Receive Date: 20111109
  Receipt Date: 20111102
  Transmission Date: 20120403
  Serious: Yes (Hospitalization)
  Sender: FDA-Public Use
  Company Number: JP-BAYER-2011-101199

PATIENT
  Age: 61 Year
  Sex: Male

DRUGS (4)
  1. NEXAVAR [Suspect]
     Dosage: DAILY DOSE: 800 MG
     Route: 048
     Dates: start: 20111001
  2. HYPNOTICS AND SEDATIVES [Suspect]
     Route: 065
  3. NEXAVAR [Suspect]
     Indication: HEPATIC NEOPLASM MALIGNANT
     Dosage: DAILY DOSE: 800 MG
     Route: 048
     Dates: start: 20111007, end: 20111001
  4. ESTAZOLAM [Suspect]
     Route: 048

REACTIONS (1)
  - ALTERED STATE OF CONSCIOUSNESS [None]
